FAERS Safety Report 13987487 (Version 4)
Quarter: 2017Q4

REPORT INFORMATION
  Report Type: Spontaneous
  Country: US (occurrence: US)
  Receive Date: 20170919
  Receipt Date: 20171010
  Transmission Date: 20180321
  Serious: Yes (Hospitalization, Other)
  Sender: FDA-Public Use
  Company Number: US-PFIZER INC-2017400944

PATIENT
  Age: 64 Year
  Sex: Male

DRUGS (2)
  1. GABAPENTIN. [Suspect]
     Active Substance: GABAPENTIN
     Indication: NEURALGIA
     Dosage: 300 MG, 4X/DAY
     Dates: start: 201706
  2. GABAPENTIN. [Suspect]
     Active Substance: GABAPENTIN
     Indication: RESTLESS LEGS SYNDROME
     Dosage: UNK

REACTIONS (5)
  - Drug ineffective for unapproved indication [Unknown]
  - Thrombosis [Not Recovered/Not Resolved]
  - Localised infection [Recovered/Resolved]
  - Gangrene [Recovered/Resolved]
  - Ischaemia [Recovered/Resolved]

NARRATIVE: CASE EVENT DATE: 20130911
